FAERS Safety Report 11317211 (Version 1)
Quarter: 2015Q3

REPORT INFORMATION
  Report Type: Spontaneous
  Country: FR (occurrence: FR)
  Receive Date: 20150728
  Receipt Date: 20150728
  Transmission Date: 20151125
  Serious: Yes (Hospitalization)
  Sender: FDA-Public Use
  Company Number: FR-HORIZON-BUP-0014-2015

PATIENT
  Age: 15 Year
  Sex: Female

DRUGS (9)
  1. VITAMIN A [Concomitant]
     Active Substance: VITAMIN A
     Route: 030
  2. VITAMIN K1 [Suspect]
     Active Substance: PHYTONADIONE
     Route: 048
  3. DELURSAN [Concomitant]
     Active Substance: URSODIOL
     Route: 048
  4. L-CARNITYL [Concomitant]
     Indication: CARNITINE DEFICIENCY
  5. AMMONAPS POWDER [Suspect]
     Active Substance: SODIUM PHENYLBUTYRATE
     Indication: PROGRESSIVE FAMILIAL INTRAHEPATIC CHOLESTASIS
     Route: 048
  6. UVEDOSE [Concomitant]
     Active Substance: CHOLECALCIFEROL
  7. FUMAFER [Concomitant]
     Active Substance: FERROUS FUMARATE
     Indication: ANAEMIA PROPHYLAXIS
  8. VITAMIN E [Suspect]
     Active Substance: .ALPHA.-TOCOPHEROL
     Route: 048
  9. RIFADINE [Concomitant]
     Active Substance: RIFAMPIN
     Indication: PRURITUS

REACTIONS (2)
  - Tremor [Unknown]
  - Off label use [Unknown]

NARRATIVE: CASE EVENT DATE: 2015
